FAERS Safety Report 10904930 (Version 1)
Quarter: 2015Q1

REPORT INFORMATION
  Report Type: Spontaneous
  Country: US (occurrence: None)
  Receive Date: 20150304
  Receipt Date: 20150304
  Transmission Date: 20150721
  Serious: Yes (Other)
  Sender: FDA-Public Use
  Company Number: None

PATIENT
  Age: 51 Year
  Sex: Female
  Weight: 63.5 kg

DRUGS (6)
  1. TERBINAFINE [Suspect]
     Active Substance: TERBINAFINE
     Indication: ONYCHOMYCOSIS
     Dosage: 1 TAB QD, ONCE DAILY, TAKEN BY MOUTH
     Route: 048
     Dates: start: 20141027, end: 20141218
  2. TERBINAFINE 250 MV [Suspect]
     Active Substance: TERBINAFINE
     Indication: ONYCHOMYCOSIS
     Dosage: 1 TAB, ONCE DAILY, TAKEN BY MOUTH
     Route: 048
     Dates: start: 20141027, end: 20141218
  3. MVI [Concomitant]
     Active Substance: VITAMINS
  4. FURINOL [Concomitant]
  5. VITAMINS MVI [Concomitant]
  6. FIBER [Concomitant]
     Active Substance: PSYLLIUM HUSK

REACTIONS (3)
  - Dysgeusia [None]
  - Dry mouth [None]
  - Hypogeusia [None]

NARRATIVE: CASE EVENT DATE: 20141218
